FAERS Safety Report 6609633-5 (Version None)
Quarter: 2010Q1

REPORT INFORMATION
  Report Type: 
  Country: None (occurrence: None)
  Receive Date: 20100302
  Receipt Date: 20100217
  Transmission Date: 20100710
  Serious: Yes (Hospitalization)
  Sender: FDA-Public Use
  Company Number: JP-BRISTOL-MYERS SQUIBB COMPANY-14990659

PATIENT
  Age: 75 Year
  Sex: Female

DRUGS (7)
  1. CIBENOL TABS [Suspect]
     Indication: ATRIAL FIBRILLATION
     Route: 048
     Dates: start: 20090801, end: 20100209
  2. WARFARIN SODIUM [Suspect]
     Dosage: TABS
     Dates: start: 20090801, end: 20100209
  3. THYRADIN S [Suspect]
     Dosage: TABS
     Dates: start: 19950101
  4. TAKEPRON [Suspect]
     Dosage: TABS
     Dates: start: 20050101, end: 20100212
  5. LIVALO [Suspect]
     Dosage: TABS
     Dates: start: 20040101, end: 20100209
  6. VITAMEDIN [Suspect]
     Dates: start: 20060101, end: 20100209
  7. AMOBAN [Suspect]
     Dosage: TABS
     Dates: start: 20091101

REACTIONS (1)
  - HEPATIC FUNCTION ABNORMAL [None]
